FAERS Safety Report 20074551 (Version 2)
Quarter: 2022Q1

REPORT INFORMATION
  Report Type: Other
  Country: US (occurrence: None)
  Receive Date: 20211116
  Receipt Date: 20220106
  Transmission Date: 20220423
  Serious: Yes (Death)
  Sender: FDA-Public Use
  Company Number: US-ROCHE-2947038

PATIENT
  Sex: Male
  Weight: 108.96 kg

DRUGS (12)
  1. OCREVUS [Suspect]
     Active Substance: OCRELIZUMAB
     Indication: Multiple sclerosis
     Dosage: MOST RECENT DOSE OF OCRELIZUMAB: 27/NOV/2017, 26/APR/2018, 23/JUN/2021
     Route: 042
  2. VITAMINS D3 [Concomitant]
     Dosage: 25 MCG
  3. FISH OIL [Concomitant]
     Active Substance: FISH OIL
  4. ASPIRIN [Concomitant]
     Active Substance: ASPIRIN
     Route: 048
  5. VITAMIN C [Concomitant]
     Active Substance: ASCORBIC ACID
  6. GARLIC [Concomitant]
     Active Substance: GARLIC
  7. ALPHA LIPOIC ACID [Concomitant]
     Active Substance: .ALPHA.-LIPOIC ACID
  8. CALCIUM ACETATE [Concomitant]
     Active Substance: CALCIUM ACETATE
  9. AMLODIPINE [Concomitant]
     Active Substance: AMLODIPINE BESYLATE
  10. LOVASTATIN [Concomitant]
     Active Substance: LOVASTATIN
  11. PRAVASTATIN [Concomitant]
     Active Substance: PRAVASTATIN
  12. CINNAMON [Concomitant]
     Active Substance: CINNAMON

REACTIONS (4)
  - Muscle spasticity [Unknown]
  - Asthenia [Unknown]
  - Upper respiratory tract infection [Unknown]
  - COVID-19 [Fatal]
